FAERS Safety Report 9769142 (Version 1)
Quarter: 2013Q4

REPORT INFORMATION
  Report Type: Spontaneous
  Country: US (occurrence: US)
  Receive Date: 20131218
  Receipt Date: 20131218
  Transmission Date: 20140711
  Serious: Yes (Other)
  Sender: FDA-Public Use
  Company Number: US-SA-2013SA131452

PATIENT
  Age: 53 Year
  Sex: Male

DRUGS (2)
  1. LANTUS SOLOSTAR [Suspect]
     Indication: TYPE 1 DIABETES MELLITUS
     Dosage: DOSE: 40 AND 20 IN AM AND PM RESPECTIVELY.
     Route: 051
     Dates: start: 2007
  2. SOLOSTAR [Concomitant]
     Indication: TYPE 1 DIABETES MELLITUS
     Dates: start: 2007

REACTIONS (1)
  - Blindness [Unknown]
